FAERS Safety Report 8919330 (Version 1)
Quarter: 2012Q4

REPORT INFORMATION
  Report Type: 
  Country: US (occurrence: US)
  Receive Date: 20121121
  Receipt Date: 20121121
  Transmission Date: 20130627
  Serious: No
  Sender: FDA-Public Use
  Company Number: US-PFIZER INC-2012286996

PATIENT
  Sex: Male

DRUGS (3)
  1. VIAGRA [Suspect]
     Indication: ERECTILE DYSFUNCTION
     Dosage: 100 mg, as needed
     Route: 048
  2. DIOVANE [Concomitant]
     Indication: BLOOD PRESSURE HIGH
     Dosage: UNK
  3. LOTREL [Concomitant]
     Indication: BLOOD PRESSURE HIGH
     Dosage: UNK

REACTIONS (4)
  - Blood test abnormal [Unknown]
  - Glucose tolerance test abnormal [Unknown]
  - Suspected counterfeit product [Unknown]
  - Drug ineffective [Unknown]
